FAERS Safety Report 4764267-2 (Version None)
Quarter: 2005Q3

REPORT INFORMATION
  Report Type: 
  Country: None (occurrence: None)
  Receive Date: 20050906
  Receipt Date: 20050825
  Transmission Date: 20060218
  Serious: Yes (Other)
  Sender: FDA-Public Use
  Company Number: 2003121574

PATIENT
  Sex: Female
  Weight: 68.0396 kg

DRUGS (6)
  1. LIPITOR [Suspect]
     Indication: BLOOD CHOLESTEROL
     Dosage: 60 MG (1 IN 1 D), ORAL
     Route: 048
     Dates: end: 20031127
  2. CIPROFLOXACIN HCL [Suspect]
     Indication: INFECTION
     Dates: start: 20031017, end: 20031101
  3. NABUMETONE [Concomitant]
  4. TYLENOL W/ CODEINE NO. 3 [Concomitant]
  5. IMITREX [Concomitant]
  6. FIORINAL WITH CODEINE (ACETYLSALICYLIC ACID, BUTALBITAL, CAFFEINE, COD [Concomitant]

REACTIONS (8)
  - ARTHRALGIA [None]
  - CONDITION AGGRAVATED [None]
  - FOOT OPERATION [None]
  - MYALGIA [None]
  - PAIN IN EXTREMITY [None]
  - POSTOPERATIVE INFECTION [None]
  - TENDONITIS [None]
  - WOUND DEHISCENCE [None]
